FAERS Safety Report 18325735 (Version 3)
Quarter: 2020Q4

REPORT INFORMATION
  Report Type: Spontaneous
  Country: NO (occurrence: NO)
  Receive Date: 20200929
  Receipt Date: 20201029
  Transmission Date: 20210113
  Serious: Yes (Hospitalization, Disabling)
  Sender: FDA-Public Use
  Company Number: NO-PFIZER INC-2020374538

PATIENT
  Age: 33 Year
  Sex: Female
  Weight: 86 kg

DRUGS (5)
  1. CETIRIZIN [Concomitant]
     Active Substance: CETIRIZINE HYDROCHLORIDE
     Indication: PRURITUS
     Dosage: 10 MG X 1, AS NEEDED
     Dates: start: 20200710
  2. IBRANCE [Suspect]
     Active Substance: PALBOCICLIB
     Indication: BREAST CANCER METASTATIC
     Dosage: 125 MG, 3 WEEKS ON FOLLOWED BY 1 WEEK BREAK
     Route: 048
     Dates: start: 20200416, end: 20200830
  3. LETROZOL ACCORD [Suspect]
     Active Substance: LETROZOLE
     Indication: BREAST CANCER METASTATIC
     Dosage: 2.5 MG, 1X/DAY
     Route: 048
     Dates: start: 20200416, end: 20200827
  4. ZOLADEX [Concomitant]
     Active Substance: GOSERELIN ACETATE
     Indication: BREAST CANCER
     Dosage: 3.6 MG EVERY 4TH WEEK
     Dates: start: 20200416, end: 20200827
  5. IMOVANE [Concomitant]
     Active Substance: ZOPICLONE
     Indication: INSOMNIA
     Dosage: 7.5 MG, AS NEEDED
     Dates: start: 20191209

REACTIONS (5)
  - Pruritus [Unknown]
  - Insomnia [Unknown]
  - Hyperbilirubinaemia [Not Recovered/Not Resolved]
  - Oesophagitis [Unknown]
  - Hepatitis cholestatic [Recovering/Resolving]

NARRATIVE: CASE EVENT DATE: 20200820
